FAERS Safety Report 7758370-2 (Version None)
Quarter: 2011Q3

REPORT INFORMATION
  Report Type: 
  Country: None (occurrence: None)
  Receive Date: 20110919
  Receipt Date: 20110908
  Transmission Date: 20111222
  Serious: Yes (Hospitalization)
  Sender: FDA-Public Use
  Company Number: JP-GENZYME-THYM-1002668

PATIENT
  Sex: Male
  Weight: 59 kg

DRUGS (3)
  1. THYMOGLOBULIN [Suspect]
     Indication: KIDNEY TRANSPLANT REJECTION
     Dosage: 1.5 MG/KG, QD
     Route: 042
     Dates: start: 20110722, end: 20110724
  2. ACETAMINOPHEN [Concomitant]
     Indication: PYREXIA
  3. METHYLPREDNISOLONE [Concomitant]
     Indication: PREMEDICATION
     Dosage: 2 MG, QD
     Dates: start: 20110722, end: 20110724

REACTIONS (2)
  - PALPITATIONS [None]
  - PYREXIA [None]
